FAERS Safety Report 12517848 (Version 1)
Quarter: 2016Q2

REPORT INFORMATION
  Report Type: Spontaneous
  Country: US (occurrence: US)
  Receive Date: 20160630
  Receipt Date: 20160630
  Transmission Date: 20160815
  Serious: Yes (Hospitalization)
  Sender: FDA-Public Use
  Company Number: US-JUBILANT CADISTA PHARMACEUTICALS-2016JUB00246

PATIENT
  Age: 41 Year
  Sex: Male

DRUGS (2)
  1. METHYLPREDNISOLONE. [Suspect]
     Active Substance: METHYLPREDNISOLONE
     Indication: SARCOIDOSIS
     Dosage: 100 MG, EVERY 8 HOURS
     Route: 042
  2. PREDNISONE. [Suspect]
     Active Substance: PREDNISONE
     Indication: SARCOIDOSIS
     Dosage: 40 MG, 1X/DAY
     Route: 048

REACTIONS (4)
  - Respiratory failure [Recovered/Resolved]
  - Immunosuppression [Recovered/Resolved]
  - Histoplasmosis disseminated [Recovered/Resolved]
  - Pancytopenia [Recovered/Resolved]
